FAERS Safety Report 10755396 (Version 1)
Quarter: 2015Q1

REPORT INFORMATION
  Report Type: Spontaneous
  Country: US (occurrence: None)
  Receive Date: 20150121
  Receipt Date: 20150121
  Transmission Date: 20150721
  Serious: Yes (Other)
  Sender: FDA-Public Use
  Company Number: 1000071105

PATIENT
  Sex: Male

DRUGS (3)
  1. ANGIOTENSIN CONVERTING ENZYME INHIBITOR (NOS) (ANGIOTENSIN CONVERTING ENZYME (NOS) [Concomitant]
  2. ANGIOTENSIN RECEPTOR BLOCKER (NOS) (ANGIOTENSIN RECEPTOR BLOCKER (NOS) [Concomitant]
  3. BYSTOLIC [Suspect]
     Active Substance: NEBIVOLOL HYDROCHLORIDE

REACTIONS (1)
  - Myocardial infarction [None]
